FAERS Safety Report 5163590-X (Version None)
Quarter: 2006Q4

REPORT INFORMATION
  Report Type: 
  Country: None (occurrence: None)
  Receive Date: 20061128
  Receipt Date: 20061128
  Transmission Date: 20070319
  Serious: Yes (Other)
  Sender: FDA-Public Use
  Company Number: None

PATIENT
  Age: 74 Year
  Sex: Male
  Weight: 121.564 kg

DRUGS (6)
  1. METFORMIN HCL [Suspect]
     Indication: DIABETES MELLITUS NON-INSULIN-DEPENDENT
     Dosage: ?
  2. INSULIN NOVOLIN NPH [Concomitant]
  3. DIGOXIN [Concomitant]
  4. FENOFIBRATE [Concomitant]
  5. TERAZOSIN HCL [Concomitant]
  6. OMEPRAZOLE [Concomitant]

REACTIONS (1)
  - RENAL IMPAIRMENT [None]
